FAERS Safety Report 9735486 (Version 2)
Quarter: 2013Q4

REPORT INFORMATION
  Report Type: Spontaneous
  Country: US (occurrence: US)
  Receive Date: 20131206
  Receipt Date: 20131206
  Transmission Date: 20140711
  Serious: No
  Sender: FDA-Public Use
  Company Number: US-GILEAD-2009-0023230

PATIENT
  Sex: Female
  Weight: 56.7 kg

DRUGS (14)
  1. LETAIRIS [Suspect]
     Indication: PULMONARY ARTERIAL HYPERTENSION
     Route: 048
     Dates: start: 200907
  2. LETAIRIS [Suspect]
     Route: 048
     Dates: start: 20090425, end: 200907
  3. COUMADIN [Concomitant]
  4. LEVOTHYROXINE [Concomitant]
  5. METHOTREXATE [Concomitant]
  6. PLAQUENIL [Concomitant]
  7. LASIX [Concomitant]
  8. DIGOXIN [Concomitant]
  9. TOPROL XL [Concomitant]
  10. NEXIUM [Concomitant]
  11. KEPPRA [Concomitant]
  12. PREDNISONE [Concomitant]
  13. ALDACTONE [Concomitant]
  14. FOLIC ACID [Concomitant]

REACTIONS (1)
  - Liver function test abnormal [Unknown]
